FAERS Safety Report 13420896 (Version 1)
Quarter: 2017Q2

REPORT INFORMATION
  Report Type: Spontaneous
  Country: AT (occurrence: AT)
  Receive Date: 20170409
  Receipt Date: 20170409
  Transmission Date: 20170830
  Serious: Yes (Other)
  Sender: FDA-Public Use
  Company Number: AT-AMGEN-AUTSP2017052143

PATIENT
  Age: 77 Year
  Sex: Male

DRUGS (1)
  1. REPATHA [Suspect]
     Active Substance: EVOLOCUMAB
     Indication: PRODUCT USED FOR UNKNOWN INDICATION
     Dosage: UNK
     Route: 065
     Dates: start: 201603, end: 201702

REACTIONS (3)
  - Haemorrhage [Unknown]
  - Diarrhoea [Not Recovered/Not Resolved]
  - Coronary arterial stent insertion [Unknown]

NARRATIVE: CASE EVENT DATE: 201609
